FAERS Safety Report 21147600 (Version 1)
Quarter: 2022Q3

REPORT INFORMATION
  Report Type: Spontaneous
  Country: JP (occurrence: JP)
  Receive Date: 20220729
  Receipt Date: 20220729
  Transmission Date: 20221027
  Serious: Yes (Other)
  Sender: FDA-Public Use
  Company Number: JP-GLAXOSMITHKLINE-JP2022JPN111404

PATIENT

DRUGS (10)
  1. VALACYCLOVIR HYDROCHLORIDE [Suspect]
     Active Substance: VALACYCLOVIR HYDROCHLORIDE
     Indication: Herpes zoster
     Dosage: 1000 MG, BID
     Route: 048
     Dates: start: 20220620, end: 20220623
  2. FAMOTIDINE OD TABLETS [Concomitant]
     Dosage: UNK
  3. TRAZENTA TABLETS [Concomitant]
     Dosage: UNK
  4. FUROSEMIDE [Concomitant]
     Active Substance: FUROSEMIDE
     Dosage: UNK
  5. MIYA-BM [Concomitant]
     Active Substance: CLOSTRIDIUM BUTYRICUM SPORES STRAIN M-55
     Dosage: UNK
  6. DONEPEZIL HYDROCHLORIDE [Concomitant]
     Active Substance: DONEPEZIL HYDROCHLORIDE
     Dosage: UNK
  7. BELSOMRA [Concomitant]
     Active Substance: SUVOREXANT
     Dosage: UNK
  8. CALONAL [Concomitant]
     Active Substance: ACETAMINOPHEN
     Dosage: UNK
  9. VIDARABINE [Concomitant]
     Active Substance: VIDARABINE
     Indication: Herpes zoster
     Dosage: UNK
     Dates: start: 20220617, end: 20220630
  10. AMENALIEF TABLET [Concomitant]
     Dosage: 400 MG, QD
     Route: 048
     Dates: start: 20220624

REACTIONS (1)
  - Pancytopenia [Recovered/Resolved]

NARRATIVE: CASE EVENT DATE: 20220623
